FAERS Safety Report 12898643 (Version 1)
Quarter: 2016Q4

REPORT INFORMATION
  Report Type: Spontaneous
  Country: IT (occurrence: IT)
  Receive Date: 20161101
  Receipt Date: 20161101
  Transmission Date: 20170207
  Serious: Yes (Other)
  Sender: FDA-Public Use
  Company Number: IT-BAXTER-2016BAX053187

PATIENT
  Age: 79 Year
  Sex: Female
  Weight: 70 kg

DRUGS (3)
  1. METRONIDAZOLO BAXTER 0,5% [Suspect]
     Active Substance: METRONIDAZOLE
     Indication: DIVERTICULITIS
     Dosage: IV-PHLEBO
     Route: 042
     Dates: start: 20161006, end: 20161011
  2. PENTACOL [Suspect]
     Active Substance: MESALAMINE
     Indication: DIVERTICULITIS
     Route: 048
     Dates: start: 20161005, end: 20161012
  3. LEVOFLOXACINA [Suspect]
     Active Substance: LEVOFLOXACIN
     Indication: DIVERTICULITIS
     Dosage: IV-PHLEBO
     Route: 042
     Dates: start: 20161006, end: 20161011

REACTIONS (1)
  - Tongue oedema [Recovering/Resolving]

NARRATIVE: CASE EVENT DATE: 20161011
